FAERS Safety Report 9788553 (Version 2)
Quarter: 2014Q1

REPORT INFORMATION
  Report Type: Spontaneous
  Country: JP (occurrence: JP)
  Receive Date: 20131230
  Receipt Date: 20140124
  Transmission Date: 20141002
  Serious: Yes (Hospitalization)
  Sender: FDA-Public Use
  Company Number: JP-BRISTOL-MYERS SQUIBB COMPANY-19942580

PATIENT
  Age: 86 Year
  Sex: Female
  Weight: 38 kg

DRUGS (6)
  1. ELIQUIS [Suspect]
     Indication: THROMBOSIS PROPHYLAXIS
     Dosage: TAB
     Route: 048
     Dates: start: 2013, end: 20131120
  2. ARICEPT [Concomitant]
     Indication: DEMENTIA ALZHEIMER^S TYPE
     Dosage: TAB
  3. LIVALO [Concomitant]
     Dosage: TAB
  4. GAMOFA [Concomitant]
     Dosage: TAB
     Route: 048
  5. LAC-B [Concomitant]
  6. MAGNESIUM OXIDE [Concomitant]

REACTIONS (1)
  - Blood creatinine increased [Recovered/Resolved]
